FAERS Safety Report 9490006 (Version 10)
Quarter: 2014Q1

REPORT INFORMATION
  Report Type: Report from Study
  Country: IE (occurrence: IE)
  Receive Date: 20130829
  Receipt Date: 20140310
  Transmission Date: 20141002
  Serious: Yes (Hospitalization)
  Sender: FDA-Public Use
  Company Number: IE-ROCHE-1265311

PATIENT
  Age: 85 Year
  Sex: Male
  Weight: 87 kg

DRUGS (13)
  1. VISMODEGIB [Suspect]
     Indication: BASAL CELL CARCINOMA
     Dosage: LAST DOSE PRIOR TO ABDOMINAL PAIN, NAUSEA AND RAISED LIVER ENZYMES: 18/AUG/2013.
     Route: 048
     Dates: start: 20130710, end: 20130818
  2. VISMODEGIB [Suspect]
     Route: 048
     Dates: start: 20130823
  3. ATECOR [Concomitant]
     Indication: CARDIAC DISORDER
     Route: 065
     Dates: start: 200001
  4. ASPIRIN [Concomitant]
     Indication: CARDIAC DISORDER
     Route: 065
     Dates: start: 200001
  5. IMDUR [Concomitant]
     Indication: CARDIAC DISORDER
     Route: 065
     Dates: start: 200001
  6. PLAVIX [Concomitant]
     Indication: CARDIAC DISORDER
     Route: 065
     Dates: start: 200001
  7. LIPITOR [Concomitant]
     Indication: BLOOD CHOLESTEROL INCREASED
     Route: 065
     Dates: start: 200001, end: 20130818
  8. LIPITOR [Concomitant]
     Route: 065
     Dates: start: 20130904
  9. TILDIEM RETARD [Concomitant]
     Indication: CARDIAC DISORDER
     Route: 065
     Dates: start: 200001
  10. DULCOLAX PICO [Concomitant]
     Indication: CONSTIPATION
     Route: 065
     Dates: start: 199006, end: 20130819
  11. SENNA [Concomitant]
     Indication: CONSTIPATION
     Route: 065
     Dates: start: 20130731, end: 20130819
  12. SENNA [Concomitant]
     Route: 065
     Dates: start: 20130824
  13. LACTULOSE [Concomitant]
     Indication: CONSTIPATION
     Route: 065
     Dates: start: 20130809

REACTIONS (3)
  - Hepatic enzyme increased [Recovered/Resolved]
  - Abdominal pain [Recovered/Resolved]
  - Nausea [Recovered/Resolved]
